FAERS Safety Report 18715887 (Version 1)
Quarter: 2021Q1

REPORT INFORMATION
  Report Type: Spontaneous
  Country: US (occurrence: US)
  Receive Date: 20210107
  Receipt Date: 20210107
  Transmission Date: 20210419
  Serious: Yes (Hospitalization)
  Sender: FDA-Public Use
  Company Number: None

PATIENT
  Sex: Male

DRUGS (10)
  1. BIPOPROL FUM [Concomitant]
  2. SOTALOL HCL [Concomitant]
     Active Substance: SOTALOL
  3. ENALAPRIL [Concomitant]
     Active Substance: ENALAPRIL
  4. REPATHA [Suspect]
     Active Substance: EVOLOCUMAB
     Indication: HYPERLIPIDAEMIA
     Route: 058
     Dates: start: 20180119
  5. CLONAZEPAM. [Concomitant]
     Active Substance: CLONAZEPAM
  6. XARELTO [Concomitant]
     Active Substance: RIVAROXABAN
  7. MEXILETINE [Concomitant]
     Active Substance: MEXILETINE
  8. ELIQUIS [Concomitant]
     Active Substance: APIXABAN
  9. PRAVASTATIN. [Concomitant]
     Active Substance: PRAVASTATIN
  10. TAMSULOSIN [Concomitant]
     Active Substance: TAMSULOSIN

REACTIONS (2)
  - Hospitalisation [None]
  - Product dose omission issue [None]
